FAERS Safety Report 9357990 (Version 2)
Quarter: 2013Q3

REPORT INFORMATION
  Report Type: Report from Study
  Country: BR (occurrence: BR)
  Receive Date: 20130620
  Receipt Date: 20130709
  Transmission Date: 20140515
  Serious: Yes (Other)
  Sender: FDA-Public Use
  Company Number: BR-US-EMD SERONO, INC.-7218054

PATIENT
  Age: 49 Year
  Sex: Male

DRUGS (4)
  1. REBIF [Suspect]
     Indication: RELAPSING-REMITTING MULTIPLE SCLEROSIS
     Route: 058
     Dates: start: 20070706
  2. CALCIUM OYSTER SHELL               /00108001/ [Concomitant]
     Indication: PRODUCT USED FOR UNKNOWN INDICATION
  3. CALCIUM D                          /01272001/ [Concomitant]
     Indication: PROPHYLAXIS
  4. ARCALION                           /00586101/ [Concomitant]
     Indication: AMNESIA

REACTIONS (3)
  - Spinal cord compression [Not Recovered/Not Resolved]
  - Spinal disorder [Not Recovered/Not Resolved]
  - Multiple sclerosis relapse [Recovered/Resolved]
